FAERS Safety Report 5517506-4 (Version None)
Quarter: 2007Q4

REPORT INFORMATION
  Report Type: 
  Country: None (occurrence: None)
  Receive Date: 20071114
  Receipt Date: 20071105
  Transmission Date: 20080405
  Serious: Yes (Other)
  Sender: FDA-Public Use
  Company Number: US-ABBOTT-07P-163-0423967-00

PATIENT
  Sex: Female

DRUGS (4)
  1. KALETRA [Suspect]
     Indication: HIV INFECTION
     Route: 048
     Dates: start: 20050803
  2. TENOFOVIR DISOPROXIL FUMARATE [Concomitant]
     Indication: HIV INFECTION
     Dates: start: 20050803, end: 20051122
  3. EMTRICITABINE [Concomitant]
     Indication: HIV INFECTION
     Dates: start: 20050803, end: 20051122
  4. TRUVADA [Concomitant]
     Indication: HIV INFECTION
     Dates: start: 20051123

REACTIONS (1)
  - ABORTION INDUCED [None]
